FAERS Safety Report 8906361 (Version 1)
Quarter: 2012Q4

REPORT INFORMATION
  Report Type: Spontaneous
  Country: US (occurrence: None)
  Receive Date: 20121109
  Receipt Date: 20121109
  Transmission Date: 20130627
  Serious: No
  Sender: FDA-Public Use
  Company Number: None

PATIENT
  Age: 72 Year
  Sex: Female

DRUGS (2)
  1. AZOPT 1% [Suspect]
     Indication: GLAUCOMA
     Dosage: 1 drop both eyes twice daily in eyes opthalmic
     Route: 047
     Dates: start: 20120928
  2. AZOPT 1% [Suspect]
     Indication: GLAUCOMA
     Dates: start: 20120929

REACTIONS (5)
  - Eye discharge [None]
  - Instillation site pain [None]
  - Eye discharge [None]
  - Ocular hyperaemia [None]
  - Instillation site foreign body sensation [None]
